FAERS Safety Report 5072737-5 (Version None)
Quarter: 2006Q3

REPORT INFORMATION
  Report Type: 
  Country: None (occurrence: None)
  Receive Date: 20060807
  Receipt Date: 20060727
  Transmission Date: 20061208
  Serious: Yes (Death, Hospitalization)
  Sender: FDA-Public Use
  Company Number: US-JNJFOC-20060503192

PATIENT
  Sex: Female

DRUGS (10)
  1. FENTANYL TRANSDERMAL SYSTEM [Suspect]
     Route: 062
  2. FENTANYL TRANSDERMAL SYSTEM [Suspect]
     Indication: PAIN
     Route: 062
  3. DARVOCET [Concomitant]
     Indication: PAIN
     Dosage: AS NEEDED
     Route: 048
  4. NEURONTIN [Concomitant]
     Indication: NEURALGIA
     Route: 048
  5. ATENOLOL [Concomitant]
     Route: 048
  6. LOPRESSOR [Concomitant]
     Route: 048
  7. PROCRIT [Concomitant]
     Route: 030
  8. LANTUS [Concomitant]
     Indication: DIABETES MELLITUS
     Route: 058
  9. PRECOSE [Concomitant]
     Route: 048
  10. FLUID MEDICATIONS [Concomitant]
     Indication: PULMONARY HYPERTENSION
     Route: 048

REACTIONS (5)
  - DEATH [None]
  - DECREASED APPETITE [None]
  - PULMONARY HYPERTENSION [None]
  - SCLERODERMA [None]
  - THERAPEUTIC RESPONSE DECREASED [None]
